FAERS Safety Report 25741933 (Version 1)
Quarter: 2025Q3

REPORT INFORMATION
  Report Type: Report from Study
  Country: CA (occurrence: CA)
  Receive Date: 20250829
  Receipt Date: 20250829
  Transmission Date: 20251021
  Serious: Yes (Hospitalization, Other)
  Sender: ABBVIE
  Company Number: CA-JNJFOC-20250800758

PATIENT
  Age: 78 Year
  Sex: Female

DRUGS (1)
  1. IMBRUVICA [Suspect]
     Active Substance: IBRUTINIB
     Indication: Chronic lymphocytic leukaemia
     Route: 048
     Dates: start: 20240207

REACTIONS (10)
  - Bacterial infection [Recovered/Resolved]
  - Arrhythmia [Recovered/Resolved]
  - Breast pain [Recovered/Resolved]
  - Dyspnoea [Unknown]
  - Peripheral swelling [Unknown]
  - Insomnia [Unknown]
  - Asthenia [Unknown]
  - Pleural effusion [Unknown]
  - Fatigue [Unknown]
  - Dyspepsia [Unknown]

NARRATIVE: CASE EVENT DATE: 20250721
